FAERS Safety Report 19888752 (Version 1)
Quarter: 2021Q3

REPORT INFORMATION
  Report Type: Report from Study
  Country: US (occurrence: US)
  Receive Date: 20210927
  Receipt Date: 20210927
  Transmission Date: 20211014
  Serious: Yes (Other)
  Sender: FDA-Public Use
  Company Number: US-APELLIS-00963

PATIENT
  Age: 32 Year
  Sex: Female

DRUGS (1)
  1. EMPAVELI [Suspect]
     Active Substance: PEGCETACOPLAN
     Indication: PAROXYSMAL NOCTURNAL HAEMOGLOBINURIA
     Route: 058

REACTIONS (2)
  - Breakthrough haemolysis [Unknown]
  - Urinary tract infection [Unknown]
